FAERS Safety Report 6788113-0 (Version None)
Quarter: 2010Q2

REPORT INFORMATION
  Report Type: 
  Country: None (occurrence: None)
  Receive Date: 20100623
  Receipt Date: 20080211
  Transmission Date: 20101027
  Serious: Yes (Other)
  Sender: FDA-Public Use
  Company Number: US-PFIZER INC-2007082694

PATIENT
  Sex: Male
  Weight: 88.5 kg

DRUGS (3)
  1. SUTENT [Suspect]
     Indication: NEOPLASM MALIGNANT
     Dosage: EVERYDAY
     Route: 048
     Dates: start: 20070801
  2. SUTENT [Suspect]
     Dosage: ONCE A DAY
     Dates: start: 20070901
  3. AMBIEN [Concomitant]

REACTIONS (2)
  - EPISTAXIS [None]
  - PLATELET COUNT DECREASED [None]
